FAERS Safety Report 13862916 (Version 2)
Quarter: 2017Q4

REPORT INFORMATION
  Report Type: Spontaneous
  Country: IT (occurrence: IT)
  Receive Date: 20170814
  Receipt Date: 20171027
  Transmission Date: 20180320
  Serious: Yes (Hospitalization, Other)
  Sender: FDA-Public Use
  Company Number: IT-SUN PHARMACEUTICAL INDUSTRIES LTD-2017US-147510

PATIENT
  Age: 24 Month
  Sex: Male
  Weight: 12.5 kg

DRUGS (1)
  1. ASPIRIN. [Suspect]
     Active Substance: ASPIRIN
     Indication: VIRAL UPPER RESPIRATORY TRACT INFECTION
     Dosage: 100 MG, DAILY (LOW-DOSE FOR TWO CONSECUTIVE DAYS)
     Route: 065

REACTIONS (3)
  - Skin hypopigmentation [Recovered/Resolved]
  - Linear IgA disease [Recovered/Resolved]
  - Self-medication [Recovered/Resolved]
